FAERS Safety Report 16343859 (Version 3)
Quarter: 2019Q3

REPORT INFORMATION
  Report Type: Spontaneous
  Country: US (occurrence: US)
  Receive Date: 20190522
  Receipt Date: 20190806
  Transmission Date: 20191004
  Serious: Yes (Other)
  Sender: FDA-Public Use
  Company Number: US-GLAXOSMITHKLINE-US2019086856

PATIENT
  Age: 62 Year
  Sex: Female

DRUGS (1)
  1. SENSODYNE [Suspect]
     Active Substance: POTASSIUM NITRATE\SODIUM FLUORIDE
     Indication: DENTAL CLEANING
     Dosage: UNK
     Dates: start: 20190401

REACTIONS (11)
  - Throat irritation [Recovered/Resolved]
  - Paraesthesia [Recovered/Resolved]
  - Headache [Recovered/Resolved]
  - Ear pruritus [Recovered/Resolved]
  - Gingival pain [Recovered/Resolved]
  - Oral pain [Recovered/Resolved]
  - Ear discomfort [Recovered/Resolved]
  - Adverse drug reaction [Unknown]
  - Fatigue [Recovered/Resolved]
  - Toothache [Recovered/Resolved]
  - Oral discomfort [Not Recovered/Not Resolved]

NARRATIVE: CASE EVENT DATE: 20190421
